FAERS Safety Report 7214241-1 (Version None)
Quarter: 2010Q4

REPORT INFORMATION
  Report Type: 
  Country: None (occurrence: None)
  Receive Date: 20101230
  Receipt Date: 20101220
  Transmission Date: 20110411
  Serious: Yes (Other)
  Sender: FDA-Public Use
  Company Number: 2010SP065527

PATIENT
  Age: 23 Year
  Sex: Female

DRUGS (1)
  1. MARVELON (DESOGESTREL/ETHINYLESTRADIOL/00570801/) [Suspect]
     Indication: CONTRACEPTION

REACTIONS (2)
  - CONDUCTIVE DEAFNESS [None]
  - SUDDEN HEARING LOSS [None]
